FAERS Safety Report 17576595 (Version 1)
Quarter: 2020Q1

REPORT INFORMATION
  Report Type: Report from Study
  Country: DE (occurrence: DE)
  Receive Date: 20200324
  Receipt Date: 20200324
  Transmission Date: 20200409
  Serious: Yes (Hospitalization)
  Sender: FDA-Public Use
  Company Number: NVSC2020DE077658

PATIENT
  Age: 51 Year
  Sex: Female
  Weight: 102.5 kg

DRUGS (12)
  1. SINUPRET FORTE [Concomitant]
     Active Substance: DIETARY SUPPLEMENT\HERBALS
     Indication: BRONCHITIS
     Dosage: UNK
     Route: 065
     Dates: start: 20200108
  2. HCT [Concomitant]
     Active Substance: HYDROCHLOROTHIAZIDE
     Indication: HYPERTENSION
     Dosage: UNK
     Route: 065
     Dates: start: 20180101
  3. METOPROLOL. [Concomitant]
     Active Substance: METOPROLOL
     Indication: HYPERTENSION
     Dosage: UNK
     Route: 065
     Dates: start: 20120101
  4. CANDESARTAN. [Concomitant]
     Active Substance: CANDESARTAN
     Indication: HYPERTENSION
     Dosage: UNK
     Route: 065
     Dates: start: 20170101
  5. LERCANIDIPINE [Concomitant]
     Active Substance: LERCANIDIPINE
     Indication: HYPERTENSION
     Dosage: UNK
     Route: 065
     Dates: start: 20180101
  6. AMBROXOL [Concomitant]
     Active Substance: AMBROXOL
     Indication: BRONCHITIS
     Dosage: UNK
     Route: 065
     Dates: start: 20200108
  7. SECUKINUMAB. [Suspect]
     Active Substance: SECUKINUMAB
     Indication: HIDRADENITIS
     Dosage: 300MG Q4W
     Route: 058
     Dates: start: 20190703
  8. ACC [Concomitant]
     Active Substance: ACETYLCYSTEINE
     Indication: BRONCHITIS
     Dosage: UNK
     Route: 065
     Dates: start: 20200108
  9. PARACODEINE [Concomitant]
     Active Substance: ACETAMINOPHEN\CODEINE PHOSPHATE
     Indication: BRONCHITIS
     Dosage: UNK
     Route: 065
     Dates: start: 20200108
  10. DOXAZOSINE [Concomitant]
     Active Substance: DOXAZOSIN MESYLATE
     Indication: ENDOMETRIOSIS
     Dosage: UNK
     Route: 065
     Dates: start: 20180701
  11. SKINSAN [Concomitant]
     Indication: HIDRADENITIS
     Dosage: UNK
     Route: 065
     Dates: start: 20190611
  12. CERAZETTE [Concomitant]
     Indication: ENDOMETRIOSIS
     Dosage: UNK
     Route: 065
     Dates: start: 20180701

REACTIONS (1)
  - Influenza [Recovered/Resolved]

NARRATIVE: CASE EVENT DATE: 20200222
